FAERS Safety Report 6772384-0 (Version None)
Quarter: 2010Q2

REPORT INFORMATION
  Report Type: 
  Country: None (occurrence: None)
  Receive Date: 20100616
  Receipt Date: 20091217
  Transmission Date: 20101027
  Serious: No
  Sender: FDA-Public Use
  Company Number: US-ASTRAZENECA-2009SE32798

PATIENT
  Age: 73 Year
  Sex: Male
  Weight: 84.4 kg

DRUGS (9)
  1. PULMICORT [Suspect]
     Indication: CHRONIC OBSTRUCTIVE PULMONARY DISEASE
     Dosage: DAILY TWICE
     Route: 055
     Dates: start: 20071201
  2. PULMICORT [Suspect]
     Dosage: EVERY DAY
     Route: 055
     Dates: end: 20091001
  3. PULMICORT [Suspect]
     Dosage: AS NEEDED
     Route: 055
     Dates: start: 20091001
  4. BROVANA [Suspect]
     Indication: CHRONIC OBSTRUCTIVE PULMONARY DISEASE
     Dosage: 15 UG/ 2ML DAILY TWICE
     Route: 055
     Dates: start: 20071201, end: 20091001
  5. BROVANA [Suspect]
     Dosage: 15 UG/ 2ML EVERY DAY
     Route: 055
     Dates: start: 20091001, end: 20091001
  6. BROVANA [Suspect]
     Dosage: 15 UG/ 2ML AS NEEDED
     Route: 055
     Dates: start: 20091001
  7. COUMADIN [Concomitant]
  8. LORAZEPAM [Concomitant]
  9. TYLENOL PM [Concomitant]

REACTIONS (10)
  - DIZZINESS [None]
  - DRUG INEFFECTIVE [None]
  - DYSGEUSIA [None]
  - DYSPHONIA [None]
  - DYSPNOEA [None]
  - FUNGAL INFECTION [None]
  - GLOSSODYNIA [None]
  - OROPHARYNGEAL PAIN [None]
  - SPUTUM INCREASED [None]
  - VOCAL CORD INFLAMMATION [None]
